FAERS Safety Report 15022763 (Version 1)
Quarter: 2018Q2

REPORT INFORMATION
  Report Type: Spontaneous
  Country: US (occurrence: US)
  Receive Date: 20180618
  Receipt Date: 20180618
  Transmission Date: 20180711
  Serious: No
  Sender: FDA-Public Use
  Company Number: US-PFIZER INC-2018244875

PATIENT
  Age: 82 Year
  Sex: Female

DRUGS (2)
  1. LYRICA [Suspect]
     Active Substance: PREGABALIN
     Dosage: 100 MG, ONCE DAILY
  2. LYRICA [Suspect]
     Active Substance: PREGABALIN
     Dosage: 50 MG, ONCE DAILY

REACTIONS (3)
  - Somnolence [Unknown]
  - Stupor [Unknown]
  - Drug effect prolonged [Unknown]
